FAERS Safety Report 16306491 (Version 5)
Quarter: 2020Q1

REPORT INFORMATION
  Report Type: Spontaneous
  Country: AU (occurrence: AU)
  Receive Date: 20190513
  Receipt Date: 20200117
  Transmission Date: 20200409
  Serious: Yes (Other)
  Sender: FDA-Public Use
  Company Number: AU-CELGENEUS-AUS-20190501381

PATIENT
  Sex: Male

DRUGS (9)
  1. THALOMID [Suspect]
     Active Substance: THALIDOMIDE
     Dosage: 100 MILLIGRAM
     Route: 048
  2. ETANERCEPT [Concomitant]
     Active Substance: ETANERCEPT
     Indication: TYPE 2 LEPRA REACTION
     Dosage: DOSE NOT PROVIDED
     Route: 065
  3. THALOMID [Suspect]
     Active Substance: THALIDOMIDE
     Dosage: 50 MILLIGRAM
     Route: 048
  4. THALOMID [Suspect]
     Active Substance: THALIDOMIDE
     Indication: TYPE 2 LEPRA REACTION
     Dosage: 50 MILLIGRAM
     Route: 048
     Dates: start: 201710, end: 20190507
  5. AZATHIOPRINE. [Concomitant]
     Active Substance: AZATHIOPRINE
     Indication: TYPE 2 LEPRA REACTION
     Dosage: DOSE NOT PROVIDED
     Route: 065
  6. PREDNISOLONE. [Concomitant]
     Active Substance: PREDNISOLONE
     Indication: TYPE 2 LEPRA REACTION
     Route: 065
  7. THALOMID [Suspect]
     Active Substance: THALIDOMIDE
     Dosage: 200 MILLIGRAM
     Route: 048
  8. THALOMID [Suspect]
     Active Substance: THALIDOMIDE
     Dosage: 100 MILLIGRAM
     Route: 048
  9. METFORMIN [Concomitant]
     Active Substance: METFORMIN HYDROCHLORIDE
     Indication: PRODUCT USED FOR UNKNOWN INDICATION
     Route: 065

REACTIONS (1)
  - Pregnancy of partner [Unknown]

NARRATIVE: CASE EVENT DATE: 2019
